FAERS Safety Report 8588171-7 (Version None)
Quarter: 2012Q3

REPORT INFORMATION
  Report Type: 
  Country: None (occurrence: None)
  Receive Date: 20120731
  Receipt Date: 20120720
  Transmission Date: 20120928
  Serious: Yes (Other)
  Sender: FDA-Public Use
  Company Number: JPI-P-022965

PATIENT
  Age: 77 Year
  Sex: Male

DRUGS (4)
  1. METHYLPHENIDATE [Concomitant]
  2. XYREM [Suspect]
     Indication: NARCOLEPSY
     Dosage: ORAL ; ORAL ; 6 GM (3 GM,2 IN 1 D),ORAL
     Route: 048
     Dates: start: 20120413, end: 20120101
  3. XYREM [Suspect]
     Indication: NARCOLEPSY
     Dosage: ORAL ; ORAL ; 6 GM (3 GM,2 IN 1 D),ORAL
     Route: 048
     Dates: start: 20120101
  4. XYREM [Suspect]
     Indication: NARCOLEPSY
     Dosage: ORAL ; ORAL ; 6 GM (3 GM,2 IN 1 D),ORAL
     Route: 048
     Dates: start: 20090119, end: 20090319

REACTIONS (4)
  - DYSPNOEA [None]
  - ASTHENIA [None]
  - HAEMOLYTIC ANAEMIA [None]
  - THROMBOSIS [None]
